FAERS Safety Report 9993103 (Version 1)
Quarter: 2014Q1

REPORT INFORMATION
  Report Type: Report from Study
  Country: US (occurrence: US)
  Receive Date: 20140310
  Receipt Date: 20140310
  Transmission Date: 20141002
  Serious: No
  Sender: FDA-Public Use
  Company Number: US-ABBVIE-13P-163-1153460-00

PATIENT
  Sex: Female

DRUGS (3)
  1. LUPRON DEPOT [Suspect]
     Indication: PRODUCT USED FOR UNKNOWN INDICATION
  2. PROZAC [Concomitant]
     Indication: DEPRESSION
     Dosage: UNKNOWN
  3. PROZAC [Concomitant]

REACTIONS (6)
  - Depression [Recovering/Resolving]
  - Mood swings [Recovering/Resolving]
  - Hot flush [Recovering/Resolving]
  - Unevaluable event [Recovering/Resolving]
  - Asthenia [Recovering/Resolving]
  - Anaemia [Recovering/Resolving]
